FAERS Safety Report 13580415 (Version 1)
Quarter: 2017Q2

REPORT INFORMATION
  Report Type: Spontaneous
  Country: US (occurrence: US)
  Receive Date: 20170525
  Receipt Date: 20170525
  Transmission Date: 20170830
  Serious: No
  Sender: FDA-Public Use
  Company Number: None

PATIENT
  Age: 68 Year
  Sex: Female
  Weight: 49.6 kg

DRUGS (5)
  1. DEXAMETHASONE. [Suspect]
     Active Substance: DEXAMETHASONE
     Dates: end: 20170511
  2. VINCRISTINE SULFATE. [Suspect]
     Active Substance: VINCRISTINE SULFATE
     Dates: end: 20170511
  3. CYTARABINE. [Suspect]
     Active Substance: CYTARABINE
     Dates: end: 20160427
  4. DAUNORUBICIN [Suspect]
     Active Substance: DAUNORUBICIN
     Dates: end: 20170511
  5. METHOTREXATE. [Suspect]
     Active Substance: METHOTREXATE
     Dates: end: 20170510

REACTIONS (11)
  - Deep vein thrombosis [None]
  - Atrial fibrillation [None]
  - Seizure [None]
  - Fall [None]
  - Syncope [None]
  - Acute lymphocytic leukaemia [None]
  - Subdural haematoma [None]
  - Supraventricular tachycardia [None]
  - Blood prolactin increased [None]
  - Pulmonary embolism [None]
  - Asthenia [None]

NARRATIVE: CASE EVENT DATE: 20170516
